FAERS Safety Report 25270919 (Version 2)
Quarter: 2025Q2

REPORT INFORMATION
  Report Type: Spontaneous
  Country: US (occurrence: US)
  Receive Date: 20250506
  Receipt Date: 20250610
  Transmission Date: 20250717
  Serious: No
  Sender: BRISTOL-MYERS SQUIBB COMPANY
  Company Number: US-BRISTOL-MYERS SQUIBB COMPANY-2025-065277

PATIENT
  Age: 61 Year
  Sex: Female
  Weight: 116.57 kg

DRUGS (2)
  1. REVLIMID [Suspect]
     Active Substance: LENALIDOMIDE
     Indication: Plasma cell myeloma
     Route: 048
  2. REVLIMID [Suspect]
     Active Substance: LENALIDOMIDE
     Route: 048

REACTIONS (6)
  - Nasopharyngitis [Unknown]
  - Fatigue [Unknown]
  - Wheezing [Unknown]
  - Cough [Unknown]
  - Oropharyngeal pain [Unknown]
  - Tremor [Not Recovered/Not Resolved]
